FAERS Safety Report 13225286 (Version 2)
Quarter: 2018Q1

REPORT INFORMATION
  Report Type: Spontaneous
  Country: DE (occurrence: DE)
  Receive Date: 20170213
  Receipt Date: 20180201
  Transmission Date: 20180508
  Serious: Yes (Other)
  Sender: FDA-Public Use
  Company Number: DE-AUROBINDO-AUR-APL-2017-29498

PATIENT
  Age: 70 Year
  Sex: Male

DRUGS (3)
  1. DOXEPIN [Interacting]
     Active Substance: DOXEPIN
     Dosage: 50 MG, DAILY
     Route: 065
  2. DULOXETINE. [Suspect]
     Active Substance: DULOXETINE
     Indication: DEPRESSION
     Dosage: 60 MG, UNK
     Route: 065
  3. DOXEPIN [Interacting]
     Active Substance: DOXEPIN
     Indication: DEPRESSION
     Dosage: 350 MG, DAILY
     Route: 065

REACTIONS (2)
  - Drug interaction [Unknown]
  - Urinary retention [Unknown]
